FAERS Safety Report 8775296 (Version 1)
Quarter: 2012Q4

REPORT INFORMATION
  Report Type: 
  Country: US (occurrence: US)
  Receive Date: 20120910
  Receipt Date: 20120910
  Transmission Date: 20130627
  Serious: Yes (Hospitalization, Other)
  Sender: FDA-Public Use
  Company Number: US-MERCK-1208USA007203

PATIENT

DRUGS (3)
  1. VICTRELIS [Suspect]
     Indication: HEPATITIS C
     Dosage: UNK
     Dates: start: 20120326, end: 20120729
  2. REBETOL [Suspect]
     Indication: HEPATITIS C
     Dosage: UNK
     Dates: start: 20120224, end: 20120729
  3. PEGASYS [Concomitant]
     Indication: HEPATITIS C
     Dosage: UNK
     Dates: start: 20120224, end: 20120729

REACTIONS (15)
  - Atypical pneumonia [Unknown]
  - Furuncle [Unknown]
  - Blood iron increased [Unknown]
  - Somnolence [Unknown]
  - Staphylococcal infection [Unknown]
  - Abscess [Unknown]
  - Pain [Unknown]
  - Sunburn [Unknown]
  - Candidiasis [Unknown]
  - Bronchitis [Unknown]
  - Pyrexia [Unknown]
  - Anaemia [Unknown]
  - Chills [Unknown]
  - Neutrophil count decreased [Unknown]
  - Rash [Unknown]
